FAERS Safety Report 23587946 (Version 1)
Quarter: 2024Q1

REPORT INFORMATION
  Report Type: Spontaneous
  Country: US (occurrence: US)
  Receive Date: 20240301
  Receipt Date: 20240301
  Transmission Date: 20240409
  Serious: Yes (Other)
  Sender: FDA-Public Use
  Company Number: US-002147023-NVSC2024US043462

PATIENT
  Sex: Female
  Weight: 77.6 kg

DRUGS (1)
  1. TASIGNA [Suspect]
     Active Substance: NILOTINIB
     Indication: Chronic myeloid leukaemia
     Dosage: 300 MG, BID
     Route: 048
     Dates: start: 20231001

REACTIONS (4)
  - Cardiac flutter [Unknown]
  - Dyspepsia [Unknown]
  - Pain [Unknown]
  - Arthralgia [Unknown]
